FAERS Safety Report 9375159 (Version 2)
Quarter: 2013Q3

REPORT INFORMATION
  Report Type: Spontaneous
  Country: FI (occurrence: FI)
  Receive Date: 20130628
  Receipt Date: 20130805
  Transmission Date: 20140515
  Serious: Yes (Other)
  Sender: FDA-Public Use
  Company Number: FI-009507513-1306SWE010092

PATIENT
  Age: 33 Year
  Sex: Female

DRUGS (1)
  1. NEXPLANON [Suspect]
     Dosage: UNK
     Route: 058
     Dates: start: 201203, end: 20130620

REACTIONS (8)
  - Abortion spontaneous [Unknown]
  - Unintended pregnancy [Recovered/Resolved]
  - Metrorrhagia [Recovered/Resolved]
  - Menorrhagia [Recovered/Resolved]
  - Device difficult to use [Unknown]
  - Device deployment issue [Recovered/Resolved]
  - Implant site fibrosis [Unknown]
  - Vaginal haemorrhage [Unknown]
